FAERS Safety Report 7586435-7 (Version None)
Quarter: 2011Q3

REPORT INFORMATION
  Report Type: 
  Country: None (occurrence: None)
  Receive Date: 20110701
  Receipt Date: 20110623
  Transmission Date: 20111222
  Serious: Yes (Hospitalization)
  Sender: FDA-Public Use
  Company Number: B0728786A

PATIENT
  Age: 70 Year
  Sex: Male

DRUGS (7)
  1. ZOVIRAX [Suspect]
     Dosage: 1600MG PER DAY
     Route: 048
     Dates: start: 20110620, end: 20110620
  2. PROTECADIN [Concomitant]
     Dosage: 10MG PER DAY
     Route: 048
  3. NORVASC [Concomitant]
     Dosage: 5MG PER DAY
     Route: 048
  4. CALCIUM CARBONATE [Concomitant]
     Dosage: 1500MG PER DAY
     Route: 048
  5. VALTREX [Suspect]
     Dosage: 1000MG PER DAY
     Route: 048
     Dates: start: 20110618, end: 20110619
  6. MICARDIS [Concomitant]
     Dosage: 80MG PER DAY
     Route: 048
  7. MIGLITOL [Concomitant]
     Dosage: 75MG PER DAY
     Route: 048

REACTIONS (4)
  - VOMITING [None]
  - DYSPHORIA [None]
  - HALLUCINATION [None]
  - ENCEPHALOPATHY [None]
